FAERS Safety Report 5732413-X (Version None)
Quarter: 2008Q2

REPORT INFORMATION
  Report Type: 
  Country: None (occurrence: None)
  Receive Date: 20080508
  Receipt Date: 20080429
  Transmission Date: 20081010
  Serious: Yes (Other)
  Sender: FDA-Public Use
  Company Number: BR-PFIZER INC-2008038652

PATIENT
  Sex: Female
  Weight: 76 kg

DRUGS (2)
  1. FARLUTAL [Suspect]
     Indication: AMENORRHOEA
     Route: 048
  2. PURAN T4 [Concomitant]
     Indication: HYPOTHYROIDISM

REACTIONS (4)
  - BLADDER PROLAPSE [None]
  - DRUG INEFFECTIVE [None]
  - HEADACHE [None]
  - VISUAL DISTURBANCE [None]
